FAERS Safety Report 5755471-5 (Version None)
Quarter: 2008Q2

REPORT INFORMATION
  Report Type: 
  Country: None (occurrence: None)
  Receive Date: 20080602
  Receipt Date: 20080519
  Transmission Date: 20081010
  Serious: Yes (Hospitalization)
  Sender: FDA-Public Use
  Company Number: US-BAYER-US-2006-031985

PATIENT
  Age: 52 Year
  Sex: Female

DRUGS (4)
  1. BETASERON [Suspect]
     Indication: RELAPSING-REMITTING MULTIPLE SCLEROSIS
     Dosage: TOTAL DAILY DOSE: 8 MIU
     Route: 058
     Dates: start: 20020320
  2. GABAPENTIN [Concomitant]
  3. FOSAMAX [Concomitant]
  4. IBUPROFEN [Concomitant]

REACTIONS (3)
  - MULTIPLE SCLEROSIS [None]
  - THYROID CANCER [None]
  - THYROID NEOPLASM [None]
